FAERS Safety Report 11421142 (Version 3)
Quarter: 2015Q3

REPORT INFORMATION
  Report Type: Spontaneous
  Country: US (occurrence: US)
  Receive Date: 20150826
  Receipt Date: 20150930
  Transmission Date: 20151125
  Serious: Yes (Hospitalization, Other)
  Sender: FDA-Public Use
  Company Number: US-GLAXOSMITHKLINE-US2015GSK121888

PATIENT
  Age: 62 Year
  Sex: Female

DRUGS (1)
  1. ADVAIR DISKUS [Suspect]
     Active Substance: FLUTICASONE PROPIONATE\SALMETEROL XINAFOATE
     Indication: PRODUCT USED FOR UNKNOWN INDICATION
     Dosage: UNK
     Dates: start: 2010

REACTIONS (15)
  - Walking aid user [Unknown]
  - Thrombosis [Unknown]
  - Knee operation [Unknown]
  - Headache [Unknown]
  - Cerebral disorder [Unknown]
  - Amnesia [Unknown]
  - Coma [Unknown]
  - Fall [Unknown]
  - Contusion [Unknown]
  - Vision blurred [Unknown]
  - Cardiac disorder [Unknown]
  - Expired product administered [Unknown]
  - Blindness [Unknown]
  - Brain injury [Unknown]
  - Cerebrovascular accident [Unknown]

NARRATIVE: CASE EVENT DATE: 201011
